FAERS Safety Report 8018969-5 (Version None)
Quarter: 2012Q1

REPORT INFORMATION
  Report Type: 
  Country: None (occurrence: None)
  Receive Date: 20120103
  Receipt Date: 20111223
  Transmission Date: 20120608
  Serious: Yes (Other)
  Sender: FDA-Public Use
  Company Number: PL-COVIDIEN/TYCO HEALTHCARE/MALLINCKRODT-T201102973

PATIENT
  Sex: Female
  Weight: 70 kg

DRUGS (1)
  1. OPTIRAY 160 [Suspect]
     Dosage: UNK
     Route: 042
     Dates: start: 20111122, end: 20111122

REACTIONS (7)
  - VOMITING [None]
  - DIARRHOEA [None]
  - FEELING HOT [None]
  - DYSPNOEA [None]
  - CHILLS [None]
  - NAUSEA [None]
  - BLOOD PRESSURE INCREASED [None]
